FAERS Safety Report 10310419 (Version 1)
Quarter: 2014Q3

REPORT INFORMATION
  Report Type: Spontaneous
  Country: US (occurrence: US)
  Receive Date: 20140717
  Receipt Date: 20140717
  Transmission Date: 20150326
  Serious: No
  Sender: FDA-Public Use
  Company Number: US-MYLANLABS-2013S1025301

PATIENT
  Age: 78 Year
  Sex: Female

DRUGS (3)
  1. BUSPIRONE HYDROCHLORIDE TABLETS, USP [Suspect]
     Active Substance: BUSPIRONE HYDROCHLORIDE
     Indication: OFF LABEL USE
     Route: 048
     Dates: start: 20131101
  2. SYNTHROID [Concomitant]
     Active Substance: LEVOTHYROXINE SODIUM
     Indication: HYPOTHYROIDISM
     Route: 048
  3. BUSPIRONE HYDROCHLORIDE TABLETS, USP [Suspect]
     Active Substance: BUSPIRONE HYDROCHLORIDE
     Indication: INSOMNIA
     Route: 048
     Dates: start: 20131101

REACTIONS (3)
  - Insomnia [Not Recovered/Not Resolved]
  - Drug ineffective for unapproved indication [Not Recovered/Not Resolved]
  - Fatigue [Not Recovered/Not Resolved]

NARRATIVE: CASE EVENT DATE: 20131101
